FAERS Safety Report 7400531-6 (Version None)
Quarter: 2011Q2

REPORT INFORMATION
  Report Type: 
  Country: None (occurrence: None)
  Receive Date: 20110407
  Receipt Date: 20110406
  Transmission Date: 20111010
  Serious: Yes (Other)
  Sender: FDA-Public Use
  Company Number: JP-PFIZER INC-2011076320

PATIENT
  Age: 80 Year
  Sex: Female

DRUGS (3)
  1. FLORID [Concomitant]
     Dosage: UNK
  2. LIPITOR [Suspect]
     Dosage: 5 MG, 1X/DAY
     Route: 048
  3. APREPITANT [Concomitant]
     Dosage: UNK

REACTIONS (1)
  - BLOOD AMYLASE INCREASED [None]
